FAERS Safety Report 9016457 (Version 2)
Quarter: 2013Q1

REPORT INFORMATION
  Report Type: Spontaneous
  Country: US (occurrence: US)
  Receive Date: 20130116
  Receipt Date: 20130131
  Transmission Date: 20140127
  Serious: Yes (Hospitalization)
  Sender: FDA-Public Use
  Company Number: US-BAYER-2012-136385

PATIENT
  Age: 94 Year
  Sex: Female
  Weight: 48 kg

DRUGS (9)
  1. XARELTO [Suspect]
     Indication: ATRIAL FIBRILLATION
     Dosage: 20 MG, UNK
     Route: 048
     Dates: start: 201209, end: 20121218
  2. XARELTO [Suspect]
     Indication: ATRIAL FIBRILLATION
  3. XARELTO [Suspect]
     Indication: CEREBROVASCULAR ACCIDENT PROPHYLAXIS
  4. IBUPROFEN [Suspect]
     Indication: PRODUCT USED FOR UNKNOWN INDICATION
  5. IBUPROFEN [Suspect]
     Indication: PRODUCT USED FOR UNKNOWN INDICATION
     Dosage: UNSPECIFIED, EVERY 6-8 HOURS AS NEEDED
  6. IBUPROFEN [Suspect]
     Indication: PRODUCT USED FOR UNKNOWN INDICATION
     Route: 065
  7. IBUPROFEN [Suspect]
     Indication: PRODUCT USED FOR UNKNOWN INDICATION
  8. IBUPROFEN [Suspect]
     Indication: PRODUCT USED FOR UNKNOWN INDICATION
  9. ALEVE GELCAP [Suspect]
     Dosage: UNSPECIFIED, EVERY 8 HOURS AS NEEDED

REACTIONS (12)
  - Gastrointestinal haemorrhage [Recovering/Resolving]
  - Hepatic enzyme increased [Recovering/Resolving]
  - Renal failure acute [Unknown]
  - International normalised ratio increased [Unknown]
  - Hepatitis acute [Unknown]
  - Hypovolaemic shock [Unknown]
  - Gastric ulcer [Unknown]
  - Haemorrhagic anaemia [Recovering/Resolving]
  - Malnutrition [Unknown]
  - Pneumonia [Unknown]
  - Hyponatraemia [Unknown]
  - Atrial fibrillation [Unknown]
